FAERS Safety Report 4432380-5 (Version None)
Quarter: 2004Q3

REPORT INFORMATION
  Report Type: 
  Country: None (occurrence: None)
  Receive Date: 20040825
  Receipt Date: 20040820
  Transmission Date: 20050211
  Serious: Yes (Other)
  Sender: FDA-Public Use
  Company Number: US-GLAXOSMITHKLINE-A0523000A

PATIENT
  Sex: Female

DRUGS (1)
  1. PAXIL CR [Suspect]
     Indication: ANXIETY
     Route: 048
     Dates: start: 20020101

REACTIONS (32)
  - ABNORMAL DREAMS [None]
  - AGGRESSION [None]
  - ANGER [None]
  - ANOREXIA [None]
  - BRUXISM [None]
  - CHEST PAIN [None]
  - CONFUSIONAL STATE [None]
  - COORDINATION ABNORMAL [None]
  - DEPERSONALISATION [None]
  - DIZZINESS [None]
  - DRUG WITHDRAWAL SYNDROME [None]
  - HEADACHE [None]
  - HYPERACUSIS [None]
  - INAPPROPRIATE AFFECT [None]
  - INSOMNIA [None]
  - IRRITABILITY [None]
  - MALAISE [None]
  - MENTAL DISORDER [None]
  - MOOD SWINGS [None]
  - MOTION SICKNESS [None]
  - NAUSEA [None]
  - NIGHTMARE [None]
  - PALPITATIONS [None]
  - PANIC ATTACK [None]
  - PARAESTHESIA [None]
  - PAROSMIA [None]
  - SLEEP DISORDER [None]
  - SUICIDAL IDEATION [None]
  - TREMOR [None]
  - VERTIGO [None]
  - VISION BLURRED [None]
  - VOMITING [None]
